FAERS Safety Report 23376057 (Version 1)
Quarter: 2024Q1

REPORT INFORMATION
  Report Type: Spontaneous
  Country: US (occurrence: US)
  Receive Date: 20240108
  Receipt Date: 20240108
  Transmission Date: 20240410
  Serious: Yes (Other)
  Sender: FDA-Public Use
  Company Number: US-BIOCON-BBL2023001930

PATIENT

DRUGS (3)
  1. BEVACIZUMAB [Suspect]
     Active Substance: BEVACIZUMAB
     Indication: Neoplasm malignant
     Dosage: 5 MG/KG, Q2W (ON DAY 1 AND DAY 15) (DOSE LEVEL 9)
     Route: 042
  2. TEMSIROLIMUS [Suspect]
     Active Substance: TEMSIROLIMUS
     Indication: Neoplasm malignant
     Dosage: 25 MG, QW (ON DAY 1, 8, 15 AND 22)
     Route: 042
  3. VALPROIC ACID [Suspect]
     Active Substance: VALPROIC ACID
     Indication: Neoplasm malignant
     Dosage: 5 MG/KG ROUNDED TO NEAREST 250 MG (ON DAYS 1-7 AND DAYS 15-21)
     Route: 048

REACTIONS (1)
  - Hypertriglyceridaemia [Unknown]
